FAERS Safety Report 13819736 (Version 2)
Quarter: 2017Q3

REPORT INFORMATION
  Report Type: Spontaneous
  Country: RU (occurrence: RU)
  Receive Date: 20170801
  Receipt Date: 20170801
  Transmission Date: 20171127
  Serious: Yes (Death, Hospitalization, Other)
  Sender: FDA-Public Use
  Company Number: RU-009507513-1707RUS012552

PATIENT
  Age: 76 Year
  Sex: Female

DRUGS (2)
  1. ZOLINZA [Suspect]
     Active Substance: VORINOSTAT
     Indication: MYCOSIS FUNGOIDES
     Dosage: 400 MG, 1 TIME A DAY
     Route: 048
  2. ONDANSETRON [Concomitant]
     Active Substance: ONDANSETRON
     Indication: MYCOSIS FUNGOIDES

REACTIONS (5)
  - Pulmonary embolism [Fatal]
  - Thrombocytopenia [Unknown]
  - Anaemia [Unknown]
  - Asthenia [Unknown]
  - Decreased appetite [Unknown]
